FAERS Safety Report 17421097 (Version 2)
Quarter: 2020Q1

REPORT INFORMATION
  Report Type: Report from Study
  Country: US (occurrence: US)
  Receive Date: 20200214
  Receipt Date: 20200306
  Transmission Date: 20200409
  Serious: Yes (Hospitalization, Other)
  Sender: FDA-Public Use
  Company Number: US-ASTELLAS-2020US005140

PATIENT
  Age: 39 Year
  Sex: Female

DRUGS (1)
  1. SOLIFENACIN [Suspect]
     Active Substance: SOLIFENACIN
     Indication: PRODUCT USED FOR UNKNOWN INDICATION
     Route: 048
     Dates: start: 201908, end: 201910

REACTIONS (5)
  - Dry mouth [Unknown]
  - Skin exfoliation [Unknown]
  - Urinary tract infection [Unknown]
  - Tremor [Unknown]
  - Sepsis [Unknown]

NARRATIVE: CASE EVENT DATE: 201910
